FAERS Safety Report 8443654-5 (Version None)
Quarter: 2012Q2

REPORT INFORMATION
  Report Type: 
  Country: None (occurrence: None)
  Receive Date: 20120607
  Receipt Date: 20120531
  Transmission Date: 20120825
  Serious: Yes (Other)
  Sender: FDA-Public Use
  Company Number: A0980136A

PATIENT
  Sex: Female

DRUGS (2)
  1. LAMOTRIGINE [Suspect]
     Indication: EPILEPSY
     Dosage: 1000 MG, DAY, UNK
  2. LEVETIRACETAM [Suspect]
     Indication: EPILEPSY
     Dosage: 2000 MG, DAY, UNK

REACTIONS (2)
  - GRAND MAL CONVULSION [None]
  - MATERNAL EXPOSURE DURING PREGNANCY [None]
